FAERS Safety Report 6396539-2 (Version None)
Quarter: 2009Q4

REPORT INFORMATION
  Report Type: 
  Country: None (occurrence: None)
  Receive Date: 20091008
  Receipt Date: 20091008
  Transmission Date: 20100525
  Serious: Yes (Hospitalization)
  Sender: FDA-Public Use
  Company Number: None

PATIENT
  Age: 39 Year
  Sex: Female
  Weight: 58.4 kg

DRUGS (6)
  1. LENALIDOMIDE [Suspect]
     Indication: HODGKIN'S DISEASE
     Dosage: 25MG QDAY PO
     Route: 048
     Dates: start: 20090805
  2. LINEZOLID [Concomitant]
  3. BACTRIM [Concomitant]
  4. DILANTIN [Concomitant]
  5. AMBIEN [Concomitant]
  6. ACYCLOVIR [Concomitant]

REACTIONS (4)
  - BRAIN ABSCESS [None]
  - DIZZINESS [None]
  - DYSPNOEA [None]
  - PANCYTOPENIA [None]
